FAERS Safety Report 20847500 (Version 1)
Quarter: 2022Q2

REPORT INFORMATION
  Report Type: Other
  Country: US (occurrence: None)
  Receive Date: 20220519
  Receipt Date: 20220519
  Transmission Date: 20220721
  Serious: Yes (Other)
  Sender: FDA-Public Use
  Company Number: US-ROCHE-3093451

PATIENT
  Age: 37 Year
  Sex: Male
  Weight: 74.910 kg

DRUGS (1)
  1. OCREVUS [Suspect]
     Active Substance: OCRELIZUMAB
     Indication: Relapsing-remitting multiple sclerosis
     Dosage: NO; INITIALLY 300 MG ON DAY1 AND DAY 15; SUBSEQUENTLY 600MG FOR EVERY 6 MONTHS.
     Route: 042
     Dates: start: 202107, end: 202108

REACTIONS (2)
  - COVID-19 [Recovered/Resolved]
  - Multiple sclerosis relapse [Recovered/Resolved]

NARRATIVE: CASE EVENT DATE: 20210701
